FAERS Safety Report 6554800-2 (Version None)
Quarter: 2010Q1

REPORT INFORMATION
  Report Type: 
  Country: None (occurrence: None)
  Receive Date: 20100127
  Receipt Date: 20100122
  Transmission Date: 20100710
  Serious: Yes (Hospitalization)
  Sender: FDA-Public Use
  Company Number: FR-RB-003555-08

PATIENT
  Age: 35 Year
  Sex: Male

DRUGS (1)
  1. SUBUTEX [Suspect]
     Indication: WITHDRAWAL SYNDROME
     Route: 042
     Dates: start: 19970101

REACTIONS (7)
  - DRUG DIVERSION [None]
  - ENDOCARDITIS [None]
  - INCORRECT ROUTE OF DRUG ADMINISTRATION [None]
  - INTENTIONAL DRUG MISUSE [None]
  - LUNG ABSCESS [None]
  - PULMONARY EMBOLISM [None]
  - SUBSTANCE ABUSE [None]
